FAERS Safety Report 25606868 (Version 1)
Quarter: 2025Q3

REPORT INFORMATION
  Report Type: Spontaneous
  Country: US (occurrence: US)
  Receive Date: 20250725
  Receipt Date: 20250725
  Transmission Date: 20251020
  Serious: No
  Sender: AMGEN
  Company Number: US-AMGEN-USASP2025143944

PATIENT
  Age: 75 Year
  Sex: Male

DRUGS (2)
  1. PROLIA [Suspect]
     Active Substance: DENOSUMAB
     Indication: Osteoporosis
     Dosage: UNK UNK, Q6MO (TWICE A YEAR)
     Route: 065
     Dates: start: 2021
  2. NOVOCAIN [Concomitant]
     Active Substance: PROCAINE HYDROCHLORIDE

REACTIONS (4)
  - Gingival disorder [Unknown]
  - Wisdom teeth removal [Unknown]
  - Incorrect product administration duration [Unknown]
  - Face injury [Unknown]

NARRATIVE: CASE EVENT DATE: 20250301
